FAERS Safety Report 9231277 (Version 2)
Quarter: 2013Q2

REPORT INFORMATION
  Report Type: Spontaneous
  Country: JP (occurrence: JP)
  Receive Date: 20130415
  Receipt Date: 20130528
  Transmission Date: 20140414
  Serious: No
  Sender: FDA-Public Use
  Company Number: JP-JHP PHARMACEUTICALS, LLC-JHP201300215

PATIENT
  Age: 59 Year
  Sex: Male

DRUGS (3)
  1. DANTRIUM [Suspect]
     Indication: NEUROLEPTIC MALIGNANT SYNDROME
     Dosage: UNK
     Route: 048
     Dates: start: 20130325, end: 20130327
  2. DANTRIUM [Suspect]
     Dosage: UNK
     Route: 048
     Dates: start: 20130404, end: 20130418
  3. DANTRIUM [Suspect]
     Indication: NEUROLEPTIC MALIGNANT SYNDROME
     Dosage: UNK
     Route: 042
     Dates: start: 20130328, end: 20130403

REACTIONS (2)
  - Depressed level of consciousness [Recovering/Resolving]
  - Dysphagia [Recovering/Resolving]
